FAERS Safety Report 18376550 (Version 1)
Quarter: 2020Q4

REPORT INFORMATION
  Report Type: Report from Study
  Country: GB (occurrence: GB)
  Receive Date: 20201013
  Receipt Date: 20201013
  Transmission Date: 20210114
  Serious: Yes (Death, Other)
  Sender: FDA-Public Use
  Company Number: GB-JNJFOC-20201011524

PATIENT
  Age: 8 Decade
  Sex: Male

DRUGS (1)
  1. TREMFYA [Suspect]
     Active Substance: GUSELKUMAB
     Indication: PSORIASIS
     Route: 058
     Dates: start: 2019

REACTIONS (5)
  - Death [Fatal]
  - Renal failure [Unknown]
  - Dermatitis exfoliative generalised [Unknown]
  - Psoriasis [Unknown]
  - Pneumonia [Unknown]
